FAERS Safety Report 11279002 (Version 1)
Quarter: 2015Q3

REPORT INFORMATION
  Report Type: Spontaneous
  Country: US (occurrence: US)
  Receive Date: 20150717
  Receipt Date: 20150717
  Transmission Date: 20151125
  Serious: No
  Sender: FDA-Public Use
  Company Number: US-ENDO PHARMACEUTICALS INC.-2015-000709

PATIENT
  Sex: Female

DRUGS (5)
  1. LISINOPRIL TABLETS [Suspect]
     Active Substance: LISINOPRIL
     Route: 065
     Dates: start: 2015, end: 2015
  2. LISINOPRIL TABLETS [Suspect]
     Active Substance: LISINOPRIL
     Route: 065
     Dates: start: 2015, end: 2015
  3. LISINOPRIL TABLETS [Suspect]
     Active Substance: LISINOPRIL
     Indication: PRODUCT USED FOR UNKNOWN INDICATION
     Route: 065
     Dates: start: 2015, end: 2015
  4. LISINOPRIL TABLETS [Suspect]
     Active Substance: LISINOPRIL
     Route: 065
     Dates: start: 201503
  5. LISINOPRIL TABLETS [Suspect]
     Active Substance: LISINOPRIL
     Route: 065
     Dates: start: 2015, end: 2015

REACTIONS (1)
  - Cough [Not Recovered/Not Resolved]

NARRATIVE: CASE EVENT DATE: 2015
